FAERS Safety Report 19632711 (Version 2)
Quarter: 2021Q4

REPORT INFORMATION
  Report Type: Report from Study
  Country: CA (occurrence: CA)
  Receive Date: 20210728
  Receipt Date: 20211202
  Transmission Date: 20220304
  Serious: Yes (Other)
  Sender: FDA-Public Use
  Company Number: CA-ABBVIE-21K-028-3903937-00

PATIENT
  Sex: Female

DRUGS (2)
  1. HUMIRA [Suspect]
     Active Substance: ADALIMUMAB
     Indication: Juvenile idiopathic arthritis
     Route: 058
     Dates: start: 20090814
  2. OXYTOCIN [Concomitant]
     Active Substance: OXYTOCIN
     Indication: Product used for unknown indication

REACTIONS (6)
  - Caesarean section [Unknown]
  - Maternal exposure during pregnancy [Unknown]
  - Fatigue [Not Recovered/Not Resolved]
  - Eye disorder [Not Recovered/Not Resolved]
  - Uveitis [Not Recovered/Not Resolved]
  - Live birth [Unknown]
